FAERS Safety Report 20890928 (Version 2)
Quarter: 2022Q2

REPORT INFORMATION
  Report Type: Other
  Country: US (occurrence: None)
  Receive Date: 20220530
  Receipt Date: 20220601
  Transmission Date: 20220721
  Serious: No
  Sender: FDA-Public Use
  Company Number: US-ROCHE-2760914

PATIENT
  Age: 53 Year
  Sex: Male
  Weight: 122.58 kg

DRUGS (28)
  1. OCREVUS [Suspect]
     Active Substance: OCRELIZUMAB
     Indication: Relapsing-remitting multiple sclerosis
     Dosage: (PRESCRIBED AS 300 MG AT DAY 0 AND 15 THEN 600 MG EVERY 6 MONTHS)
     Route: 042
     Dates: start: 2019
  2. OCREVUS [Suspect]
     Active Substance: OCRELIZUMAB
     Dosage: ONGOING: YES
     Route: 065
  3. OCREVUS [Suspect]
     Active Substance: OCRELIZUMAB
     Dosage: DATE OF TREATMENT: 16/DEC/2019, 01/JUN/2020, 03/DEC/2020, 03/JUN/2021, 12/NOV/2021, 21/APR/2022
     Route: 042
     Dates: start: 2019
  4. BENADRYL [Suspect]
     Active Substance: DIPHENHYDRAMINE HYDROCHLORIDE
     Indication: Premedication
     Route: 065
  5. CLONAZEPAM [Suspect]
     Active Substance: CLONAZEPAM
     Indication: Anxiety
     Dosage: TAKE 2 TABLET (1 MG) BY MOUTH NIGHTLY AS NEEDED
     Route: 048
  6. GABAPENTIN [Concomitant]
     Active Substance: GABAPENTIN
     Route: 048
  7. SOLU-MEDROL [Concomitant]
     Active Substance: METHYLPREDNISOLONE SODIUM SUCCINATE
  8. WELLBUTRIN XL [Concomitant]
     Active Substance: BUPROPION HYDROCHLORIDE
  9. RELPAX [Concomitant]
     Active Substance: ELETRIPTAN HYDROBROMIDE
  10. PROZAC [Concomitant]
     Active Substance: FLUOXETINE HYDROCHLORIDE
  11. VISTARIL [Concomitant]
     Active Substance: HYDROXYZINE PAMOATE
  12. COZAAR [Concomitant]
     Active Substance: LOSARTAN POTASSIUM
  13. PROTONIX [Concomitant]
     Active Substance: PANTOPRAZOLE SODIUM
  14. XIFAXAN [Concomitant]
     Active Substance: RIFAXIMIN
  15. CHOLECALCIFEROL [Concomitant]
     Active Substance: CHOLECALCIFEROL
  16. BUPROPION [Concomitant]
     Active Substance: BUPROPION
  17. DILTIAZEM [Concomitant]
     Active Substance: DILTIAZEM
  18. FLUOXETINE [Concomitant]
     Active Substance: FLUOXETINE HYDROCHLORIDE
  19. LOSARTAN [Concomitant]
     Active Substance: LOSARTAN
  20. MIRTAZAPINE [Concomitant]
     Active Substance: MIRTAZAPINE
  21. PANTOPRAZOLE [Concomitant]
     Active Substance: PANTOPRAZOLE
  22. TRAMADOL [Concomitant]
     Active Substance: TRAMADOL
  23. TIZANIDINE [Concomitant]
     Active Substance: TIZANIDINE
  24. ZOLPIDEM [Concomitant]
     Active Substance: ZOLPIDEM TARTRATE
  25. ALBUTEROL SULFATE [Concomitant]
     Active Substance: ALBUTEROL SULFATE
  26. DICYCLOMINE [Concomitant]
     Active Substance: DICYCLOMINE HYDROCHLORIDE
  27. KETOCONAZOLE [Concomitant]
     Active Substance: KETOCONAZOLE
  28. LORAZEPAM [Concomitant]
     Active Substance: LORAZEPAM

REACTIONS (8)
  - Fatigue [Not Recovered/Not Resolved]
  - Vascular pain [Unknown]
  - Burning sensation [Unknown]
  - Therapeutic response shortened [Unknown]
  - COVID-19 [Recovering/Resolving]
  - Constipation [Recovered/Resolved]
  - Off label use [Unknown]
  - Nausea [Unknown]

NARRATIVE: CASE EVENT DATE: 20201101
